FAERS Safety Report 8947284 (Version 2)
Quarter: 2013Q1

REPORT INFORMATION
  Report Type: Report from Study
  Country: DE (occurrence: DE)
  Receive Date: 20121205
  Receipt Date: 20130214
  Transmission Date: 20140127
  Serious: Yes (Hospitalization, Other)
  Sender: FDA-Public Use
  Company Number: DE-OTSUKA-EU-2012-10054

PATIENT
  Sex: Male
  Weight: 85 kg

DRUGS (12)
  1. SAMSCA [Suspect]
     Indication: HYPONATRAEMIA
     Dosage: 7.5 MG MILLIGRAM(S), DAILY DOSE
     Route: 048
     Dates: start: 20110714
  2. SAMSCA [Suspect]
     Indication: INAPPROPRIATE ANTIDIURETIC HORMONE SECRETION
  3. SODIUM [Concomitant]
     Indication: HYPONATRAEMIA
     Dosage: 6 DF DOSAGE FORM, UNK
     Route: 048
     Dates: end: 20110711
  4. MOXONIDIN [Concomitant]
     Indication: HYPERTENSION
     Dosage: 0.4 MG MILLIGRAM(S), DAILY DOSE
     Route: 048
  5. ASS [Concomitant]
     Indication: CARDIOVASCULAR DISORDER
     Dosage: 100 MG MILLIGRAM(S), DAILY DOSE
     Route: 048
  6. VALPROIC ACID [Concomitant]
     Indication: EPILEPSY
     Dosage: 100 MG MILLIGRAM(S), DAILY DOSE
     Route: 048
     Dates: start: 2009
  7. SIMVASTATIN [Concomitant]
     Indication: HYPERLIPIDAEMIA
     Dosage: 10 MG MILLIGRAM(S), DAILY DOSE
     Route: 048
  8. FELODIPIN [Concomitant]
     Indication: HYPERTENSION
     Dosage: 10 MG MILLIGRAM(S), DAILY DOSE
     Route: 048
  9. RAMIPRIL [Concomitant]
     Indication: HYPERTENSION
     Dosage: 5 MG MILLIGRAM(S), DAILY DOSE
     Route: 048
     Dates: end: 201201
  10. RAMIPRIL [Concomitant]
     Dosage: 10 MG MILLIGRAM(S), DAILY DOSE
     Route: 048
     Dates: start: 201201
  11. BISOPROLOL [Concomitant]
     Indication: HYPERTENSION
     Dosage: 5 MG MILLIGRAM(S), DAILY DOSE
     Route: 048
     Dates: end: 201202
  12. BISOPROLOL [Concomitant]
     Dosage: 10 MG MILLIGRAM(S), DAILY DOSE
     Route: 048
     Dates: start: 201202

REACTIONS (7)
  - Angioedema [Recovered/Resolved]
  - Pleural neoplasm [Not Recovered/Not Resolved]
  - Lung neoplasm [Not Recovered/Not Resolved]
  - Adrenal neoplasm [Not Recovered/Not Resolved]
  - Orthostatic hypotension [Not Recovered/Not Resolved]
  - Constipation [Recovered/Resolved]
  - Wrong technique in drug usage process [Unknown]
